FAERS Safety Report 8874804 (Version 1)
Quarter: 2012Q4

REPORT INFORMATION
  Report Type: 
  Country: US (occurrence: US)
  Receive Date: 20121023
  Receipt Date: 20121023
  Transmission Date: 20130627
  Serious: Yes (Other)
  Sender: FDA-Public Use
  Company Number: US-PFIZER INC-2012259521

PATIENT
  Sex: Male

DRUGS (3)
  1. TORISEL [Suspect]
     Indication: RENAL CELL CARCINOMA
     Dosage: 25 mg, weekly
     Route: 042
  2. TORISEL [Suspect]
     Dosage: 20 mg, weekly
     Route: 042
  3. TORISEL [Suspect]
     Dosage: UNK
     Route: 042

REACTIONS (1)
  - Hypertriglyceridaemia [Unknown]
